FAERS Safety Report 22285653 (Version 1)
Quarter: 2023Q2

REPORT INFORMATION
  Report Type: Spontaneous
  Country: US (occurrence: US)
  Receive Date: 20230504
  Receipt Date: 20230504
  Transmission Date: 20230721
  Serious: No
  Sender: FDA-Public Use
  Company Number: USA--2022-US-000306

PATIENT
  Age: 68 Year
  Sex: Male

DRUGS (2)
  1. LATANOPROST [Suspect]
     Active Substance: LATANOPROST
     Dosage: 1 GGT O U QHS
     Dates: start: 20220101, end: 20220406
  2. Refresh Plus Lubricant Eye Drops PF -50 single-use containers [Concomitant]

REACTIONS (5)
  - Vision blurred [Recovering/Resolving]
  - Photophobia [Recovering/Resolving]
  - Sinus congestion [Recovering/Resolving]
  - Chest pain [Recovering/Resolving]
  - Urinary tract infection [Recovered/Resolved]
